FAERS Safety Report 4743901-7 (Version None)
Quarter: 2005Q3

REPORT INFORMATION
  Report Type: 
  Country: None (occurrence: None)
  Receive Date: 20050809
  Receipt Date: 20050804
  Transmission Date: 20060218
  Serious: Yes (Death, Hospitalization)
  Sender: FDA-Public Use
  Company Number: GBWYE573311APR05

PATIENT
  Age: 83 Year
  Sex: Male

DRUGS (9)
  1. EFFEXOR XR [Suspect]
     Indication: DEPRESSION
     Dosage: SEE IMAGE
     Route: 048
     Dates: start: 20031101, end: 20031201
  2. EFFEXOR XR [Suspect]
     Indication: DEPRESSION
     Dosage: SEE IMAGE
     Route: 048
     Dates: start: 20031219
  3. ATENOLOL [Suspect]
     Indication: HYPERTENSION
     Dosage: 50 MG 1X PER 1 DAY
     Route: 048
     Dates: end: 20040601
  4. ASPIRIN [Concomitant]
  5. BENDROFLUAZIDE (BENDROFLUAZIDE) [Concomitant]
  6. TIMOLOL MALEATE [Concomitant]
  7. LANTANOPROST (LATANOPROST) [Concomitant]
  8. ZOLPIDEM TARTRATE [Concomitant]
  9. SENNA (SENNA) [Concomitant]

REACTIONS (4)
  - CARDIAC FAILURE [None]
  - DEPRESSED LEVEL OF CONSCIOUSNESS [None]
  - GENERAL PHYSICAL HEALTH DETERIORATION [None]
  - TACHYCARDIA [None]
